FAERS Safety Report 4380693-8 (Version None)
Quarter: 2004Q2

REPORT INFORMATION
  Report Type: 
  Country: None (occurrence: None)
  Receive Date: 20040616
  Receipt Date: 20040602
  Transmission Date: 20050107
  Serious: Yes (Hospitalization)
  Sender: FDA-Public Use
  Company Number: 2004AP02587

PATIENT
  Age: 59 Year
  Sex: Female

DRUGS (5)
  1. SEROQUEL [Suspect]
     Dosage: 25 MG DAILY PO
     Route: 048
     Dates: start: 20040422, end: 20040422
  2. FAMOTIDINE [Concomitant]
  3. SEPAMIT [Concomitant]
  4. PANTOSIN [Concomitant]
  5. MAGNESIUM OXIDE [Concomitant]

REACTIONS (3)
  - BLOOD GLUCOSE INCREASED [None]
  - HYPOTENSION [None]
  - LOSS OF CONSCIOUSNESS [None]
